FAERS Safety Report 10238106 (Version 1)
Quarter: 2014Q2

REPORT INFORMATION
  Report Type: Spontaneous
  Country: US (occurrence: None)
  Receive Date: 20140613
  Receipt Date: 20140613
  Transmission Date: 20141212
  Serious: No
  Sender: FDA-Public Use
  Company Number: None

PATIENT
  Age: 79 Year
  Sex: Male

DRUGS (1)
  1. XELJANZ TABLET 5 MG [Suspect]
     Indication: RHEUMATOID ARTHRITIS
     Dosage: XELJANZ 5 MG 1 TAB TWICE DAILY ORAL
     Route: 048
     Dates: start: 20140225

REACTIONS (1)
  - Skin mass [None]
